FAERS Safety Report 18509241 (Version 2)
Quarter: 2020Q4

REPORT INFORMATION
  Report Type: Spontaneous
  Country: AT (occurrence: AT)
  Receive Date: 20201117
  Receipt Date: 20201212
  Transmission Date: 20210114
  Serious: Yes (Other)
  Sender: FDA-Public Use
  Company Number: AT-ROCHE-2714535

PATIENT
  Age: 23 Year
  Sex: Male

DRUGS (2)
  1. HEMLIBRA [Suspect]
     Active Substance: EMICIZUMAB-KXWH
     Indication: FACTOR VIII DEFICIENCY
     Route: 065
     Dates: start: 201907
  2. HEMLIBRA [Suspect]
     Active Substance: EMICIZUMAB-KXWH
     Dosage: MAINTENANCE THERAPY, 3 MG/KG =210 MG
     Route: 065
     Dates: start: 2019

REACTIONS (5)
  - Muscle haemorrhage [Recovering/Resolving]
  - Haemorrhage [Recovering/Resolving]
  - Joint swelling [Unknown]
  - Haematoma [Unknown]
  - Injury [Unknown]

NARRATIVE: CASE EVENT DATE: 2020
